FAERS Safety Report 15325465 (Version 2)
Quarter: 2018Q4

REPORT INFORMATION
  Report Type: Spontaneous
  Country: US (occurrence: US)
  Receive Date: 20180828
  Receipt Date: 20181003
  Transmission Date: 20190204
  Serious: Yes (Death, Other)
  Sender: FDA-Public Use
  Company Number: US-GLAXOSMITHKLINE-US2018GSK154586

PATIENT
  Sex: Male

DRUGS (2)
  1. PREVACID [Suspect]
     Active Substance: LANSOPRAZOLE
     Indication: DYSPEPSIA
     Dosage: UNK
     Route: 065
  2. PREVACID [Suspect]
     Active Substance: LANSOPRAZOLE
     Indication: DYSPEPSIA
     Dosage: UNK, BID
     Route: 065

REACTIONS (10)
  - Renal failure [Unknown]
  - Cardiac failure congestive [Unknown]
  - Glomerulonephritis [Unknown]
  - Coronary artery disease [Fatal]
  - End stage renal disease [Unknown]
  - Myocardial infarction [Fatal]
  - Dialysis [Unknown]
  - Cardiac failure [Unknown]
  - Nephrogenic anaemia [Unknown]
  - Chronic kidney disease [Fatal]
